FAERS Safety Report 6043517-9 (Version None)
Quarter: 2009Q1

REPORT INFORMATION
  Report Type: 
  Country: None (occurrence: None)
  Receive Date: 20090114
  Receipt Date: 20090114
  Transmission Date: 20090719
  Serious: Yes (Hospitalization)
  Sender: FDA-Public Use
  Company Number: None

PATIENT
  Age: 86 Year
  Sex: Female
  Weight: 67 kg

DRUGS (6)
  1. FUROSEMIDE [Suspect]
     Indication: HYPERTENSION
     Dosage: PO PRIOR TO ADMIT
     Route: 048
  2. LISINOPRIL [Concomitant]
  3. PIOGLITAZONE [Concomitant]
  4. GLIPIZIDE [Concomitant]
  5. POTASSIUM SUPPLEMENT [Concomitant]
  6. SIMVASTATIN [Concomitant]

REACTIONS (10)
  - BLOOD GLUCOSE INCREASED [None]
  - BLOOD SODIUM DECREASED [None]
  - CONFUSIONAL STATE [None]
  - DEHYDRATION [None]
  - FALL [None]
  - HYPERNATRAEMIA [None]
  - HYPERTENSION [None]
  - MENTAL STATUS CHANGES [None]
  - RENAL FAILURE ACUTE [None]
  - RHABDOMYOLYSIS [None]
